FAERS Safety Report 21581691 (Version 1)
Quarter: 2022Q4

REPORT INFORMATION
  Report Type: Spontaneous
  Country: TR (occurrence: TR)
  Receive Date: 20221111
  Receipt Date: 20221111
  Transmission Date: 20230113
  Serious: Yes (Death, Hospitalization, Other)
  Sender: FDA-Public Use
  Company Number: TR-ALKEM LABORATORIES LIMITED-TR-ALKEM-2022-12518

PATIENT
  Age: 16 Year
  Sex: Female

DRUGS (1)
  1. COLCHICINE [Suspect]
     Active Substance: COLCHICINE
     Dosage: 0.84 MILLIGRAM/KILOGRAM
     Route: 048

REACTIONS (6)
  - Disseminated intravascular coagulation [Fatal]
  - Multiple organ dysfunction syndrome [Fatal]
  - Shock [Fatal]
  - Toxicity to various agents [Fatal]
  - Completed suicide [Fatal]
  - Overdose [Fatal]
